FAERS Safety Report 8198569-7 (Version None)
Quarter: 2012Q1

REPORT INFORMATION
  Report Type: 
  Country: None (occurrence: None)
  Receive Date: 20120309
  Receipt Date: 20120306
  Transmission Date: 20120608
  Serious: Yes (Other)
  Sender: FDA-Public Use
  Company Number: PHHY2012NL019988

PATIENT
  Sex: Male

DRUGS (4)
  1. ZOMETA [Suspect]
     Dosage: 04 MG/ 100 ML AT ONE FOR 21 DAYS
     Route: 042
     Dates: start: 20120124
  2. ZOMETA [Suspect]
     Indication: PROSTATE CANCER METASTATIC
     Dosage: 04 MG/ 100 ML AT ONE FOR 21 DAYS
     Route: 042
  3. ZOMETA [Suspect]
     Dosage: 04 MG/ 100 ML AT ONE FOR 21 DAYS
     Route: 042
     Dates: start: 20111216
  4. ZOMETA [Suspect]
     Dosage: 04 MG/ 100 ML AT ONE FOR 21 DAYS
     Route: 042
     Dates: start: 20120214

REACTIONS (1)
  - TERMINAL STATE [None]
